FAERS Safety Report 4357069-2 (Version None)
Quarter: 2004Q2

REPORT INFORMATION
  Report Type: 
  Country: None (occurrence: None)
  Receive Date: 20040512
  Receipt Date: 20040218
  Transmission Date: 20050107
  Serious: Yes (Other)
  Sender: FDA-Public Use
  Company Number: FR-ROCHE-359256

PATIENT

DRUGS (2)
  1. ROACCUTANE [Suspect]
     Indication: ACNE
     Dates: start: 20010615, end: 20020425
  2. VARNOLINE [Concomitant]

REACTIONS (5)
  - COMPLICATIONS OF MATERNAL EXPOSURE TO THERAPEUTIC DRUGS [None]
  - INTRA-UTERINE DEATH [None]
  - PREMATURE BABY [None]
  - STILLBIRTH [None]
  - TWIN PREGNANCY [None]
